FAERS Safety Report 7904151-6 (Version None)
Quarter: 2011Q4

REPORT INFORMATION
  Report Type: 
  Country: None (occurrence: None)
  Receive Date: 20111109
  Receipt Date: 20111104
  Transmission Date: 20120403
  Serious: Yes (Other)
  Sender: FDA-Public Use
  Company Number: BR-PFIZER INC-2011270428

PATIENT
  Age: 62 Year
  Sex: Male

DRUGS (1)
  1. XALATAN [Suspect]
     Dosage: UNK
     Route: 047
     Dates: start: 20010101

REACTIONS (3)
  - EYE HAEMORRHAGE [None]
  - THROMBOSIS [None]
  - INTRAOCULAR PRESSURE DECREASED [None]
